FAERS Safety Report 9182233 (Version 1)
Quarter: 2013Q1

REPORT INFORMATION
  Report Type: Spontaneous
  Country: US (occurrence: None)
  Receive Date: 20130321
  Receipt Date: 20130321
  Transmission Date: 20140127
  Serious: Yes (Hospitalization)
  Sender: FDA-Public Use
  Company Number: None

PATIENT
  Age: 12 Year
  Sex: Female
  Weight: 49.9 kg

DRUGS (1)
  1. RISPERIDONE [Suspect]
     Indication: SLEEP DISORDER
     Dosage: 1 @BEDTIME EVERY NIGHT
     Dates: start: 20130225

REACTIONS (1)
  - Rash [None]
